FAERS Safety Report 24378916 (Version 1)
Quarter: 2024Q3

REPORT INFORMATION
  Report Type: Spontaneous
  Country: PL (occurrence: PL)
  Receive Date: 20240930
  Receipt Date: 20240930
  Transmission Date: 20241017
  Serious: Yes (Other)
  Sender: CHEPLAPHARM
  Company Number: PL-CHEPLA-2024012236

PATIENT
  Age: 14 Day
  Sex: Male

DRUGS (16)
  1. GANCICLOVIR [Suspect]
     Active Substance: GANCICLOVIR
  2. RITUXIMAB [Suspect]
     Active Substance: RITUXIMAB
     Indication: Antiviral prophylaxis
  3. RITUXIMAB [Suspect]
     Active Substance: RITUXIMAB
     Indication: Antiviral prophylaxis
  4. BORTEZOMIB [Suspect]
     Active Substance: BORTEZOMIB
  5. ETOPOSIDE [Concomitant]
     Active Substance: ETOPOSIDE
     Dosage: CONDITIONING REGIMEN
  6. CYTARABINE [Concomitant]
     Active Substance: CYTARABINE
     Dosage: CONDITIONING REGIMEN
  7. FLUDARABINE [Concomitant]
     Active Substance: FLUDARABINE PHOSPHATE
     Dosage: CONDITIONING REGIMEN
  8. MELPHALAN [Concomitant]
     Active Substance: MELPHALAN
     Dosage: CONDITIONING REGIMEN
  9. THYMOGLOBULIN [Concomitant]
     Active Substance: LAPINE T-LYMPHOCYTE IMMUNE GLOBULIN
     Dosage: CONDITIONING REGIMEN
  10. CYCLOSPORINE [Concomitant]
     Active Substance: CYCLOSPORINE
     Indication: Prophylaxis against graft versus host disease
  11. METHOTREXATE [Concomitant]
     Active Substance: METHOTREXATE
     Indication: Prophylaxis against graft versus host disease
  12. METHOTREXATE [Concomitant]
     Active Substance: METHOTREXATE
     Indication: Prophylaxis against graft versus host disease
     Route: 048
  13. TABELECLEUCEL [Concomitant]
     Active Substance: TABELECLEUCEL
     Dosage: ON DAY +31, A THIRD SERIES OF THERAPY WITH TABELECLEUCEL WAS STARTED
  14. TABELECLEUCEL [Concomitant]
     Active Substance: TABELECLEUCEL
     Dosage: TWO COURSES
  15. PREDNISONE [Concomitant]
     Active Substance: PREDNISONE
     Route: 048
  16. PREDNISOLONE [Concomitant]
     Active Substance: PREDNISOLONE

REACTIONS (4)
  - Chronic graft versus host disease in skin [Recovering/Resolving]
  - Cytomegalovirus infection reactivation [Unknown]
  - Obliterative bronchiolitis [Unknown]
  - Gastrointestinal inflammation [Unknown]
